FAERS Safety Report 8614043 (Version 2)
Quarter: 2012Q4

REPORT INFORMATION
  Report Type: 
  Country: US (occurrence: US)
  Receive Date: 20120614
  Receipt Date: 20120830
  Transmission Date: 20130627
  Serious: Yes (Other)
  Sender: FDA-Public Use
  Company Number: US-UCBSA-059288

PATIENT
  Age: 27 Year
  Sex: Female
  Weight: 71.2 kg

DRUGS (3)
  1. KEPPRA XR [Suspect]
     Dosage: DAILY DOSE : 1000 MG
     Route: 048
     Dates: start: 200809
  2. FOLIC ACID [Concomitant]
     Dosage: DAILY DOSE : 4 MG
     Route: 048
     Dates: start: 200809
  3. PRENATAL VITAMIN [Concomitant]
     Dosage: DAILY DOSE :1
     Route: 048
     Dates: start: 200809

REACTIONS (2)
  - Abortion spontaneous [Recovered/Resolved]
  - Pregnancy [Recovered/Resolved]
